FAERS Safety Report 18390386 (Version 1)
Quarter: 2020Q4

REPORT INFORMATION
  Report Type: Spontaneous
  Country: US (occurrence: US)
  Receive Date: 20201015
  Receipt Date: 20201015
  Transmission Date: 20210114
  Serious: Yes (Other)
  Sender: FDA-Public Use
  Company Number: US-TAKEDA-2020TUS042818

PATIENT
  Sex: Male

DRUGS (1)
  1. VELCADE [Suspect]
     Active Substance: BORTEZOMIB
     Indication: PLASMA CELL MYELOMA
     Dosage: 2.9 MILLIGRAM
     Route: 065
     Dates: start: 20200911, end: 20200911

REACTIONS (2)
  - Injection site hypersensitivity [Unknown]
  - Myocardial infarction [Unknown]
